FAERS Safety Report 10356625 (Version 2)
Quarter: 2014Q3

REPORT INFORMATION
  Report Type: Spontaneous
  Country: US (occurrence: US)
  Receive Date: 20140801
  Receipt Date: 20140811
  Transmission Date: 20150326
  Serious: Yes (Life-Threatening)
  Sender: FDA-Public Use
  Company Number: US-MALLINCKRODT-T201402951

PATIENT
  Sex: Male

DRUGS (2)
  1. SODIUM IODIDE I 131 [Suspect]
     Active Substance: SODIUM IODIDE I-131
     Dosage: 1 MCI, UNK
     Route: 048
  2. SODIUM IODIDE I 131 [Suspect]
     Active Substance: SODIUM IODIDE I-131
     Indication: PAPILLARY THYROID CANCER
     Dosage: 135 MCI
     Route: 048

REACTIONS (3)
  - Convulsion [Recovered/Resolved]
  - Tumour haemorrhage [Recovered/Resolved]
  - Hemiparesis [Recovering/Resolving]
